FAERS Safety Report 5075531-4 (Version None)
Quarter: 2006Q3

REPORT INFORMATION
  Report Type: 
  Country: None (occurrence: None)
  Receive Date: 20060803
  Receipt Date: 20060803
  Transmission Date: 20061208
  Serious: Yes (Hospitalization)
  Sender: FDA-Public Use
  Company Number: None

PATIENT
  Age: 78 Year
  Sex: Male
  Weight: 64.9 kg

DRUGS (1)
  1. GATIFLOXACIN [Suspect]

REACTIONS (1)
  - DIARRHOEA [None]
